FAERS Safety Report 25947992 (Version 1)
Quarter: 2025Q4

REPORT INFORMATION
  Report Type: Spontaneous
  Country: JP (occurrence: JP)
  Receive Date: 20251022
  Receipt Date: 20251022
  Transmission Date: 20260118
  Serious: Yes (Hospitalization, Other)
  Sender: TAKEDA
  Company Number: JP-TAKEDA-2025TJP010586

PATIENT
  Age: 73 Year
  Sex: Male

DRUGS (1)
  1. AGRYLIN [Suspect]
     Active Substance: ANAGRELIDE HYDROCHLORIDE
     Indication: Myeloproliferative neoplasm
     Dosage: UNK

REACTIONS (2)
  - Acquired haemophilia [Recovered/Resolved]
  - Subcutaneous haematoma [Unknown]
